FAERS Safety Report 5813875-6 (Version None)
Quarter: 2008Q3

REPORT INFORMATION
  Report Type: 
  Country: None (occurrence: None)
  Receive Date: 20080717
  Receipt Date: 20080708
  Transmission Date: 20090109
  Serious: Yes (Hospitalization)
  Sender: FDA-Public Use
  Company Number: DE-ABBOTT-08P-062-0461862-00

PATIENT
  Sex: Female

DRUGS (4)
  1. HUMIRA [Suspect]
     Indication: CROHN'S DISEASE
     Route: 058
     Dates: start: 20080407, end: 20080605
  2. HUMIRA [Suspect]
     Route: 058
     Dates: start: 20080626
  3. CORTISONE [Concomitant]
     Indication: CROHN'S DISEASE
  4. IBANDRONATE SODIUM [Concomitant]
     Indication: OSTEOPOROSIS

REACTIONS (3)
  - FISTULA [None]
  - ILEUS [None]
  - SKIN PAPILLOMA [None]
